FAERS Safety Report 20788210 (Version 6)
Quarter: 2022Q4

REPORT INFORMATION
  Report Type: Report from Study
  Country: DE (occurrence: None)
  Receive Date: 20220505
  Receipt Date: 20221114
  Transmission Date: 20230113
  Serious: Yes (Disabling)
  Sender: FDA-Public Use
  Company Number: DE-ROCHE-3086114

PATIENT
  Age: 64 Year
  Sex: Female
  Weight: 68.4 kg

DRUGS (12)
  1. ADO-TRASTUZUMAB EMTANSINE [Suspect]
     Active Substance: ADO-TRASTUZUMAB EMTANSINE
     Indication: Breast cancer metastatic
     Route: 042
     Dates: start: 20210831, end: 20220329
  2. TUCATINIB [Suspect]
     Active Substance: TUCATINIB
     Indication: Breast cancer metastatic
     Route: 065
     Dates: start: 20210831, end: 20220419
  3. LEVOTHYROXINE [Concomitant]
     Active Substance: LEVOTHYROXINE
     Dates: start: 1997
  4. METOPROLOL [Concomitant]
     Active Substance: METOPROLOL
  5. TORSEMIDE [Concomitant]
     Active Substance: TORSEMIDE
     Dates: start: 20190927
  6. MAGNETRANS [Concomitant]
     Dates: start: 20190207
  7. PREGABALIN [Concomitant]
     Active Substance: PREGABALIN
     Dates: start: 20190517
  8. CHOLECALCIFEROL [Concomitant]
     Active Substance: CHOLECALCIFEROL
     Dates: start: 20170327
  9. ONDANSETRON [Concomitant]
     Active Substance: ONDANSETRON
     Dates: start: 20220329
  10. PALONOSETRON [Concomitant]
     Active Substance: PALONOSETRON
     Dates: start: 20220329
  11. VITAMIN B1 [Concomitant]
     Active Substance: THIAMINE HYDROCHLORIDE
     Dates: start: 20220125
  12. VITAMIN B6 [Concomitant]
     Active Substance: PYRIDOXINE HYDROCHLORIDE
     Dates: start: 20220125

REACTIONS (3)
  - Insomnia [Recovered/Resolved]
  - Anxiety [Recovered/Resolved]
  - Depression [Recovered/Resolved]

NARRATIVE: CASE EVENT DATE: 20220329
